FAERS Safety Report 19930070 (Version 2)
Quarter: 2021Q4

REPORT INFORMATION
  Report Type: Spontaneous
  Country: US (occurrence: US)
  Receive Date: 20211007
  Receipt Date: 20211014
  Transmission Date: 20220303
  Serious: No
  Sender: FDA-Public Use
  Company Number: US-BAYER-2021A225511

PATIENT
  Age: 53 Year
  Sex: Male

DRUGS (1)
  1. ALEVE [Suspect]
     Active Substance: NAPROXEN SODIUM
     Indication: Pain
     Dosage: 2 DF
     Route: 048
     Dates: start: 202102, end: 20210906

REACTIONS (3)
  - Renal disorder [Recovered/Resolved]
  - Abdominal pain upper [Recovered/Resolved]
  - Pain [Unknown]
